FAERS Safety Report 4559942-9 (Version None)
Quarter: 2005Q1

REPORT INFORMATION
  Report Type: 
  Country: None (occurrence: None)
  Receive Date: 20050124
  Receipt Date: 20021113
  Transmission Date: 20050727
  Serious: Yes (Hospitalization)
  Sender: FDA-Public Use
  Company Number: C02-C-007

PATIENT
  Age: 78 Year
  Sex: Female
  Weight: 68.0396 kg

DRUGS (5)
  1. PHENTERMINE HYDROCHLORIDE [Suspect]
     Indication: OBESITY
  2. ESTRATEST (ESTROGEN; MEDROXYPROGESTERONE TABLETS [Concomitant]
  3. ADVIL [Concomitant]
  4. MULTI-VITAMINS [Concomitant]
  5. HERBAL SUPPLEMENTS [Concomitant]

REACTIONS (24)
  - ASTHENIA [None]
  - BALANCE DISORDER [None]
  - BLOOD PRESSURE SYSTOLIC INCREASED [None]
  - CEREBRAL ATROPHY [None]
  - CEREBROVASCULAR ACCIDENT [None]
  - COORDINATION ABNORMAL [None]
  - DIFFICULTY IN WALKING [None]
  - DIPLOPIA [None]
  - EYE MOVEMENT DISORDER [None]
  - FATIGUE [None]
  - GAIT DISTURBANCE [None]
  - GAZE PALSY [None]
  - HAEMOGLOBIN INCREASED [None]
  - HEMIPARESIS [None]
  - IIIRD NERVE PARALYSIS [None]
  - LACUNAR INFARCTION [None]
  - MEMORY IMPAIRMENT [None]
  - MUSCLE DISORDER [None]
  - MUSCULOSKELETAL STIFFNESS [None]
  - MYASTHENIA GRAVIS [None]
  - NECK PAIN [None]
  - OPHTHALMOPLEGIA [None]
  - SMOOTH MUSCLE ANTIBODY POSITIVE [None]
  - VISION BLURRED [None]
